FAERS Safety Report 6738083-6 (Version None)
Quarter: 2010Q2

REPORT INFORMATION
  Report Type: 
  Country: None (occurrence: None)
  Receive Date: 20100520
  Receipt Date: 20100507
  Transmission Date: 20101027
  Serious: Yes (Hospitalization)
  Sender: FDA-Public Use
  Company Number: TCI2010A00432

PATIENT
  Age: 72 Year
  Sex: Male

DRUGS (7)
  1. TAKEPRON OD TABLETS 30 (LANSOPRAZOLE) [Suspect]
     Indication: HELICOBACTER INFECTION
     Dosage: 60 MG (3O MG, 2 IN 1 DAY) PER ORAL
     Route: 048
     Dates: start: 20100128, end: 20100131
  2. CLARITHROMYCIN [Suspect]
     Indication: HELICOBACTER INFECTION
     Dosage: 800 MG (400 MG 2 IN 1 D), PER ORAL
     Route: 048
     Dates: start: 20100128, end: 20100131
  3. AMOXICILLIN TRIHYDRATE [Suspect]
     Indication: HELICOBACTER INFECTION
     Dosage: 1500 MG (750 MG, 2 IN 1 D), PER ORAL
     Route: 048
     Dates: start: 20100128, end: 20100131
  4. MAGMITT (MAGNESIUM OXIDE) [Concomitant]
  5. NORVASC [Concomitant]
  6. OLOPATADINE HYDROCHLORIDE [Concomitant]
  7. ALLEGRA [Concomitant]

REACTIONS (1)
  - INAPPROPRIATE ANTIDIURETIC HORMONE SECRETION [None]
